FAERS Safety Report 5430926-1 (Version None)
Quarter: 2007Q3

REPORT INFORMATION
  Report Type: 
  Country: None (occurrence: None)
  Receive Date: 20070830
  Receipt Date: 20070829
  Transmission Date: 20080115
  Serious: Yes (Life-Threatening, Hospitalization, Other)
  Sender: FDA-Public Use
  Company Number: FR-BRISTOL-MYERS SQUIBB COMPANY-13823406

PATIENT
  Age: 76 Year
  Sex: Male
  Weight: 82 kg

DRUGS (4)
  1. APROVEL TABS [Suspect]
     Route: 048
     Dates: end: 20070521
  2. LASIX [Suspect]
     Route: 048
     Dates: end: 20070521
  3. CELECTOL [Suspect]
     Route: 048
     Dates: end: 20070521
  4. TAHOR [Suspect]
     Route: 048
     Dates: end: 20070521

REACTIONS (3)
  - ANURIA [None]
  - DEHYDRATION [None]
  - RENAL FAILURE ACUTE [None]
